FAERS Safety Report 8758510 (Version 2)
Quarter: 2012Q4

REPORT INFORMATION
  Report Type: 
  Country: US (occurrence: US)
  Receive Date: 20120829
  Receipt Date: 20121004
  Transmission Date: 20130627
  Serious: No
  Sender: FDA-Public Use
  Company Number: US-009507513-1207USA011679

PATIENT
  Age: 23 Year
  Sex: Female

DRUGS (2)
  1. IMPLANON [Suspect]
     Indication: CONTRACEPTION
     Dosage: 1 rod
     Route: 059
     Dates: start: 200906
  2. DEPO-PROVERA [Concomitant]
     Indication: CONTRACEPTION

REACTIONS (5)
  - Complication of device insertion [Unknown]
  - Device difficult to use [Unknown]
  - Incorrect drug administration duration [Unknown]
  - Medical device complication [Unknown]
  - No adverse event [Unknown]
